FAERS Safety Report 22053945 (Version 4)
Quarter: 2023Q2

REPORT INFORMATION
  Report Type: Report from Study
  Country: US (occurrence: US)
  Receive Date: 20230302
  Receipt Date: 20230522
  Transmission Date: 20230722
  Serious: No
  Sender: FDA-Public Use
  Company Number: US-002147023-NVSC2023US048535

PATIENT
  Sex: Female

DRUGS (2)
  1. COSENTYX [Suspect]
     Active Substance: SECUKINUMAB
     Indication: Psoriasis
     Dosage: 150 MG, QW (INITIALLY ONCE A WEEK FOR 5 WEEKS)
     Route: 058
     Dates: start: 20220630
  2. COSENTYX [Suspect]
     Active Substance: SECUKINUMAB
     Dosage: 150 MG, QMO (NOW ONCE EVERY 4 WEEKS)
     Route: 058

REACTIONS (1)
  - Psoriasis [Not Recovered/Not Resolved]
